FAERS Safety Report 15602879 (Version 2)
Quarter: 2018Q4

REPORT INFORMATION
  Report Type: Report from Study
  Country: FR (occurrence: FR)
  Receive Date: 20181109
  Receipt Date: 20181225
  Transmission Date: 20190205
  Serious: Yes (Death, Hospitalization)
  Sender: FDA-Public Use
  Company Number: FR-AMGEN-FRACT2018158775

PATIENT
  Age: 71 Year
  Sex: Male

DRUGS (13)
  1. ELOXATIN [Suspect]
     Active Substance: OXALIPLATIN
     Indication: COLORECTAL CANCER METASTATIC
     Dosage: 181.3 MG, QCYCLE
     Route: 042
     Dates: start: 20180904, end: 20181015
  2. CALCIUM LEVOFOLINATE [Suspect]
     Active Substance: LEVOLEUCOVORIN CALCIUM
     Indication: COLORECTAL CANCER METASTATIC
     Dosage: 428 MG, QCYCLE
     Route: 042
     Dates: start: 20180904, end: 20181015
  3. KARDEGIC [Concomitant]
     Active Substance: ASPIRIN DL-LYSINE
     Indication: ARRHYTHMIA
  4. DEXERYL [Concomitant]
     Indication: DRUG TOXICITY PROPHYLAXIS
     Dosage: UNK
     Dates: start: 20180904
  5. KETUM [Concomitant]
     Active Substance: KETOPROFEN
     Indication: PERIPHERAL ARTERIAL OCCLUSIVE DISEASE
     Dosage: UNK
     Dates: end: 20181009
  6. CARDENSIEL [Concomitant]
     Active Substance: BISOPROLOL FUMARATE
     Indication: HYPERTENSION
     Dosage: UNK
     Dates: start: 2016
  7. IXPRIM [Concomitant]
     Active Substance: ACETAMINOPHEN\TRAMADOL HYDROCHLORIDE
     Indication: ABDOMINAL PAIN
     Dosage: UNK
     Dates: end: 20181009
  8. PANITUMUMAB [Suspect]
     Active Substance: PANITUMUMAB
     Indication: COLORECTAL CANCER METASTATIC
     Dosage: 432 MG, QCYCLE
     Route: 042
     Dates: start: 20180904, end: 20181015
  9. FLUOROURACIL. [Suspect]
     Active Substance: FLUOROURACIL
     Indication: COLORECTAL CANCER METASTATIC
     Dosage: 684.8 MG, QCYCLE
     Route: 040
     Dates: start: 20180904, end: 20181015
  10. KARDEGIC [Concomitant]
     Active Substance: ASPIRIN DL-LYSINE
     Indication: DYSLIPIDAEMIA
     Dosage: UNK
     Dates: start: 2017
  11. FLUOROURACIL. [Suspect]
     Active Substance: FLUOROURACIL
     Dosage: 4108 MG, QCYCLE
     Route: 042
     Dates: start: 20180904, end: 20181017
  12. CIFLOX [Concomitant]
     Active Substance: CIPROFLOXACIN
     Indication: ARTHRITIS
     Dosage: UNK
     Dates: end: 20181004
  13. KARDEGIC [Concomitant]
     Active Substance: ASPIRIN DL-LYSINE
     Indication: PERIPHERAL ARTERIAL OCCLUSIVE DISEASE

REACTIONS (1)
  - Tumour perforation [Fatal]

NARRATIVE: CASE EVENT DATE: 20181024
